FAERS Safety Report 23941519 (Version 2)
Quarter: 2024Q3

REPORT INFORMATION
  Report Type: Spontaneous
  Country: JP (occurrence: JP)
  Receive Date: 20240605
  Receipt Date: 20240919
  Transmission Date: 20241017
  Serious: Yes (Death)
  Sender: AMGEN
  Company Number: JP-AMGEN-JPNSP2024108560

PATIENT
  Age: 1 Month
  Sex: Female

DRUGS (4)
  1. BUPHENYL [Suspect]
     Active Substance: SODIUM PHENYLBUTYRATE
     Indication: Urea cycle disorder
     Dosage: 1.2 GRAM, QD
     Route: 048
     Dates: start: 20231211, end: 20231216
  2. ARGININE [Concomitant]
     Active Substance: ARGININE
     Indication: Urea cycle disorder
     Dosage: 1.2 GRAM, QD
     Route: 065
     Dates: start: 20231211, end: 20231216
  3. SODIUM BENZOATE [Concomitant]
     Active Substance: SODIUM BENZOATE
     Indication: Urea cycle disorder
     Dosage: 1.2 GRAM, QD
     Route: 065
     Dates: start: 20231211, end: 20231216
  4. CARBAGLU [Concomitant]
     Active Substance: CARGLUMIC ACID
     Indication: Urea cycle disorder
     Dosage: 600 MILLIGRAM, QD
     Dates: start: 20231211, end: 20231216

REACTIONS (1)
  - Neonatal haemochromatosis [Fatal]
